APPROVED DRUG PRODUCT: TIROSINT
Active Ingredient: LEVOTHYROXINE SODIUM
Strength: 0.137MG
Dosage Form/Route: CAPSULE;ORAL
Application: N021924 | Product #009
Applicant: IBSA INSTITUT BIOCHIMIQUE SA
Approved: Oct 2, 2009 | RLD: Yes | RS: No | Type: RX